FAERS Safety Report 8548698-0 (Version None)
Quarter: 2012Q3

REPORT INFORMATION
  Report Type: 
  Country: None (occurrence: None)
  Receive Date: 20120730
  Receipt Date: 20120719
  Transmission Date: 20120928
  Serious: Yes (Other)
  Sender: FDA-Public Use
  Company Number: PHHY2011JP70048

PATIENT
  Age: 70 Year
  Sex: Female

DRUGS (2)
  1. NARCOTICS [Concomitant]
     Dosage: UNK UKN, UNK
  2. AFINITOR [Suspect]
     Indication: RENAL CELL CARCINOMA
     Dosage: UNK UKN, UNK
     Route: 048
     Dates: start: 20110704

REACTIONS (7)
  - NAUSEA [None]
  - VOMITING [None]
  - HEADACHE [None]
  - PLEURAL EFFUSION [None]
  - GENERAL PHYSICAL HEALTH DETERIORATION [None]
  - DECREASED APPETITE [None]
  - CONCOMITANT DISEASE PROGRESSION [None]
